FAERS Safety Report 23678925 (Version 3)
Quarter: 2024Q2

REPORT INFORMATION
  Report Type: Report from Study
  Country: MX (occurrence: None)
  Receive Date: 20240327
  Receipt Date: 20240507
  Transmission Date: 20240716
  Serious: Yes (Other)
  Sender: FDA-Public Use
  Company Number: 2024A071832

PATIENT
  Age: 635 Month
  Sex: Female
  Weight: 136 kg

DRUGS (3)
  1. XIGDUO XR [Suspect]
     Active Substance: DAPAGLIFLOZIN PROPANEDIOL\METFORMIN HYDROCHLORIDE
     Indication: Glucose tolerance impaired
     Route: 048
     Dates: start: 202312
  2. XIGDUO XR [Suspect]
     Active Substance: DAPAGLIFLOZIN PROPANEDIOL\METFORMIN HYDROCHLORIDE
     Indication: Diabetes mellitus
     Route: 048
     Dates: start: 202312
  3. LEVOTHYROXINE SODIUM [Suspect]
     Active Substance: LEVOTHYROXINE SODIUM
     Dosage: UNKNOWN

REACTIONS (30)
  - Arthralgia [Not Recovered/Not Resolved]
  - Back injury [Unknown]
  - Pain [Not Recovered/Not Resolved]
  - Tinnitus [Recovered/Resolved]
  - Dry mouth [Not Recovered/Not Resolved]
  - Gastrointestinal sounds abnormal [Recovered/Resolved]
  - Stomatitis [Not Recovered/Not Resolved]
  - Ageusia [Not Recovered/Not Resolved]
  - Mouth injury [Not Recovered/Not Resolved]
  - Hypothyroidism [Not Recovered/Not Resolved]
  - Folliculitis [Not Recovered/Not Resolved]
  - Dysuria [Recovered/Resolved]
  - Peripheral swelling [Unknown]
  - Hypothyroidism [Not Recovered/Not Resolved]
  - Mobility decreased [Unknown]
  - Feeling abnormal [Unknown]
  - Stress [Unknown]
  - Anxiety [Not Recovered/Not Resolved]
  - Dyspnoea [Recovered/Resolved]
  - Chest discomfort [Recovered/Resolved]
  - Breath sounds abnormal [Recovered/Resolved]
  - Agitation [Recovered/Resolved]
  - Bone density decreased [Recovered/Resolved]
  - Toothache [Not Recovered/Not Resolved]
  - Snoring [Recovered/Resolved]
  - Dental caries [Unknown]
  - Off label use [Unknown]
  - Environmental exposure [Not Recovered/Not Resolved]
  - Product dose omission issue [Unknown]
  - Overweight [Not Recovered/Not Resolved]

NARRATIVE: CASE EVENT DATE: 20230401
